FAERS Safety Report 12236898 (Version 3)
Quarter: 2016Q2

REPORT INFORMATION
  Report Type: Spontaneous
  Country: BR (occurrence: BR)
  Receive Date: 20160405
  Receipt Date: 20160502
  Transmission Date: 20160815
  Serious: Yes (Death, Hospitalization)
  Sender: FDA-Public Use
  Company Number: BR-ROCHE-1735860

PATIENT
  Sex: Female

DRUGS (3)
  1. CARBOPLATIN. [Suspect]
     Active Substance: CARBOPLATIN
     Indication: COLORECTAL CANCER
     Route: 065
  2. AVASTIN [Suspect]
     Active Substance: BEVACIZUMAB
     Indication: COLORECTAL CANCER
     Route: 065
     Dates: end: 201509
  3. TAXOL [Suspect]
     Active Substance: PACLITAXEL
     Indication: COLORECTAL CANCER
     Route: 065

REACTIONS (3)
  - Pelvic abscess [Unknown]
  - Intestinal perforation [Unknown]
  - Infection [Fatal]
